FAERS Safety Report 23221628 (Version 2)
Quarter: 2023Q4

REPORT INFORMATION
  Report Type: Report from Study
  Country: CA (occurrence: CA)
  Receive Date: 20231123
  Receipt Date: 20231201
  Transmission Date: 20240110
  Serious: Yes (Other)
  Sender: FDA-Public Use
  Company Number: CA-Korea IPSEN-2023-03448

PATIENT
  Age: 52 Year
  Sex: Female

DRUGS (13)
  1. LANREOTIDE ACETATE [Suspect]
     Active Substance: LANREOTIDE ACETATE
     Indication: Acromegaly
     Route: 058
     Dates: start: 20181019
  2. LANREOTIDE ACETATE [Suspect]
     Active Substance: LANREOTIDE ACETATE
     Route: 058
  3. CYCLOBENZAPRINE [Concomitant]
     Active Substance: CYCLOBENZAPRINE
  4. SYNTHROID [Concomitant]
     Active Substance: LEVOTHYROXINE SODIUM
  5. TWYNSTA [Concomitant]
     Active Substance: AMLODIPINE BESYLATE\TELMISARTAN
  6. OXAZEPAM [Concomitant]
     Active Substance: OXAZEPAM
  7. CORTISONE [Concomitant]
     Active Substance: CORTISONE
  8. DESMOPRESSIN [Concomitant]
     Active Substance: DESMOPRESSIN
  9. PANTOPRAZOLE [Concomitant]
     Active Substance: PANTOPRAZOLE
  10. CELECOXIB [Concomitant]
     Active Substance: CELECOXIB
     Indication: Pain
  11. RIVA ATORVASTATIN [Concomitant]
  12. CALCIUM [Concomitant]
     Active Substance: CALCIUM
     Dosage: CALCIUM 500
  13. CORTEF [Concomitant]
     Active Substance: HYDROCORTISONE

REACTIONS (4)
  - Blindness transient [Recovered/Resolved]
  - Headache [Not Recovered/Not Resolved]
  - Depressed mood [Not Recovered/Not Resolved]
  - Off label use [Unknown]

NARRATIVE: CASE EVENT DATE: 20230209
